FAERS Safety Report 9221741 (Version 1)
Quarter: 2013Q2

REPORT INFORMATION
  Report Type: Spontaneous
  Country: US (occurrence: US)
  Receive Date: 20130410
  Receipt Date: 20130410
  Transmission Date: 20140414
  Serious: Yes (Other)
  Sender: FDA-Public Use
  Company Number: US-JNJFOC-20130402615

PATIENT
  Sex: 0

DRUGS (11)
  1. DOXORUBICIN [Suspect]
     Indication: HODGKIN^S DISEASE
     Dosage: STANFORD V REGIMEN FOR 12 WEEKS
     Route: 042
  2. MECHLORETHAMINE [Suspect]
     Indication: HODGKIN^S DISEASE
     Dosage: STANFORD V REGIMEN FOR 12 WEEKS
     Route: 065
  3. VINBLASTINE [Suspect]
     Indication: HODGKIN^S DISEASE
     Dosage: STANFORD V REGIMEN FOR 12 WEEKS
     Route: 065
  4. VINBLASTINE [Suspect]
     Indication: HODGKIN^S DISEASE
     Dosage: ABVD THERAPY
     Route: 065
  5. VINCRISTINE [Suspect]
     Indication: HODGKIN^S DISEASE
     Dosage: STANFORD V REGIMEN FOR 12 WEEKS
     Route: 065
  6. BLEOMYCIN [Suspect]
     Indication: HODGKIN^S DISEASE
     Dosage: STANFORD V REGIMEN FOR 12 WEEKS
     Route: 065
  7. ETOPOSIDE [Suspect]
     Indication: HODGKIN^S DISEASE
     Dosage: STANFORD V REGIMEN FOR 12 WEEKS
     Route: 065
  8. PREDNISONE [Suspect]
     Indication: HODGKIN^S DISEASE
     Dosage: STANFORD V REGIMEN FOR 12 WEEKS
     Route: 065
  9. DACARBAZINE [Suspect]
     Indication: HODGKIN^S DISEASE
     Dosage: ABVD THERPAY
     Route: 065
  10. PROCARBAZINE [Suspect]
     Indication: HODGKIN^S DISEASE
     Dosage: MOPP THERAPY
     Route: 065
  11. RADIOTHERAPY [Suspect]
     Indication: HODGKIN^S DISEASE
     Route: 065

REACTIONS (3)
  - Hodgkin^s disease recurrent [Unknown]
  - Acute myeloid leukaemia [Unknown]
  - Myelodysplastic syndrome [Unknown]
